FAERS Safety Report 6436160-0 (Version None)
Quarter: 2009Q4

REPORT INFORMATION
  Report Type: 
  Country: None (occurrence: None)
  Receive Date: 20091111
  Receipt Date: 20091030
  Transmission Date: 20100525
  Serious: Yes (Other)
  Sender: FDA-Public Use
  Company Number: CA-ROCHE-665587

PATIENT
  Age: 20 Year
  Sex: Female
  Weight: 93 kg

DRUGS (8)
  1. VESANOID [Suspect]
     Indication: DRUG USE FOR UNKNOWN INDICATION
     Route: 048
  2. CERUBIDINE [Suspect]
     Indication: DRUG USE FOR UNKNOWN INDICATION
     Route: 042
  3. ALLOPURINOL [Concomitant]
  4. ZOFRAN [Concomitant]
  5. DEXAMETHASONE [Concomitant]
  6. PAROXETINE [Concomitant]
  7. CLONAZEPAM [Concomitant]
  8. LANSOPRAZOLE [Concomitant]

REACTIONS (4)
  - BRADYCARDIA [None]
  - DYSPNOEA [None]
  - ELECTROCARDIOGRAM ABNORMAL [None]
  - HYPOXIA [None]
